FAERS Safety Report 6130859-1 (Version None)
Quarter: 2009Q1

REPORT INFORMATION
  Report Type: 
  Country: None (occurrence: None)
  Receive Date: 20090325
  Receipt Date: 20090316
  Transmission Date: 20090719
  Serious: Yes (Other)
  Sender: FDA-Public Use
  Company Number: JP-BRISTOL-MYERS SQUIBB COMPANY-14516744

PATIENT
  Age: 47 Year
  Sex: Male
  Weight: 62 kg

DRUGS (5)
  1. ABILIFY [Suspect]
     Indication: SCHIZOPHRENIA
     Route: 048
     Dates: start: 20080501
  2. AKINETON [Concomitant]
     Dosage: FORM = TABS
  3. BIPERIDEN HYDROCHLORIDE TAB [Concomitant]
     Dosage: TABLET
     Dates: start: 20070302
  4. VEGETAMIN A [Concomitant]
     Dosage: TABLET
     Dates: start: 20070302
  5. MAGNESIUM OXIDE [Concomitant]
     Dates: start: 20070302

REACTIONS (2)
  - DELUSION [None]
  - HALLUCINATION, OLFACTORY [None]
